FAERS Safety Report 6934440-3 (Version None)
Quarter: 2010Q3

REPORT INFORMATION
  Report Type: 
  Country: None (occurrence: None)
  Receive Date: 20100820
  Receipt Date: 20100813
  Transmission Date: 20110219
  Serious: Yes (Life-Threatening, Hospitalization)
  Sender: FDA-Public Use
  Company Number: B0670688A

PATIENT
  Sex: Female
  Weight: 52 kg

DRUGS (1)
  1. AUGMENTIN '125' [Suspect]
     Route: 042
     Dates: start: 20100624, end: 20100624

REACTIONS (4)
  - CYANOSIS [None]
  - CYANOSIS CENTRAL [None]
  - LOSS OF CONSCIOUSNESS [None]
  - PARAESTHESIA [None]
